FAERS Safety Report 6118608-4 (Version None)
Quarter: 2009Q1

REPORT INFORMATION
  Report Type: 
  Country: None (occurrence: None)
  Receive Date: 20090314
  Receipt Date: 20090223
  Transmission Date: 20090719
  Serious: No
  Sender: FDA-Public Use
  Company Number: US-ABBOTT-09P-163-0558998-00

PATIENT
  Sex: Female
  Weight: 49.94 kg

DRUGS (11)
  1. HUMIRA [Suspect]
     Indication: RHEUMATOID ARTHRITIS
     Route: 058
  2. PREDNISONE [Concomitant]
     Indication: RHEUMATOID ARTHRITIS
     Route: 048
  3. DHEA WITH ESTRIOL [Concomitant]
     Indication: ARTHRITIS
     Dosage: UNSURE OF STRENGTH
     Route: 048
  4. SOMA [Concomitant]
     Indication: ARTHRALGIA
     Route: 048
  5. SOMA [Concomitant]
     Indication: INSOMNIA
  6. CALCIUM SUPPLEMENT [Concomitant]
     Indication: OSTEOPOROSIS
     Route: 048
  7. MAGNESIUM SULFATE [Concomitant]
     Indication: OSTEOPOROSIS
     Route: 048
  8. VITAMIN D3 [Concomitant]
     Indication: RHEUMATOID ARTHRITIS
     Route: 048
  9. VITAMIN D3 [Concomitant]
     Indication: OSTEOPOROSIS
  10. LOVAZA [Concomitant]
     Indication: RHEUMATOID ARTHRITIS
     Route: 048
  11. MUTLIVITAMIN [Concomitant]
     Indication: VITAMIN SUPPLEMENTATION
     Route: 048

REACTIONS (1)
  - METRORRHAGIA [None]
